FAERS Safety Report 8224533-5 (Version None)
Quarter: 2012Q1

REPORT INFORMATION
  Report Type: 
  Country: None (occurrence: None)
  Receive Date: 20120321
  Receipt Date: 20120315
  Transmission Date: 20120608
  Serious: No
  Sender: FDA-Public Use
  Company Number: US-PFIZER INC-2012069533

PATIENT
  Sex: Female
  Weight: 60.317 kg

DRUGS (5)
  1. ADVAIR DISKUS 100/50 [Concomitant]
     Indication: ASTHMA
     Dosage: UNK, 2X/DAY
  2. PROAIR HFA [Concomitant]
     Indication: ASTHMA
     Dosage: UNK, 4X/DAY
  3. SYMBICORT [Concomitant]
     Indication: ASTHMA
     Dosage: UNK, 2X/DAY
  4. NABUMETONE [Concomitant]
     Indication: ARTHRITIS
     Dosage: 750 MG, EVERY SIX HOURS
  5. CHANTIX [Suspect]
     Indication: SMOKING CESSATION THERAPY
     Dosage: 0.5 MG,DAILY
     Dates: start: 20120313

REACTIONS (1)
  - ABNORMAL DREAMS [None]
